FAERS Safety Report 5234498-6 (Version None)
Quarter: 2007Q1

REPORT INFORMATION
  Report Type: 
  Country: None (occurrence: None)
  Receive Date: 20070208
  Receipt Date: 20070208
  Transmission Date: 20070707
  Serious: Yes (Other)
  Sender: FDA-Public Use
  Company Number: None

PATIENT
  Age: 26 Year
  Sex: Female
  Weight: 57 kg

DRUGS (1)
  1. MEPERIDINE HCL [Suspect]
     Indication: PAIN
     Dosage: 10MG Q10 MIN INJ
     Dates: start: 20060821, end: 20060825

REACTIONS (11)
  - ABDOMINAL PAIN [None]
  - ANXIETY [None]
  - BACK PAIN [None]
  - CONFUSIONAL STATE [None]
  - CRYING [None]
  - DISORIENTATION [None]
  - FOAMING AT MOUTH [None]
  - HEART RATE INCREASED [None]
  - MUSCLE RIGIDITY [None]
  - NAUSEA [None]
  - TEARFULNESS [None]
